FAERS Safety Report 11798107 (Version 1)
Quarter: 2015Q4

REPORT INFORMATION
  Report Type: Report from Study
  Country: US (occurrence: US)
  Receive Date: 20151203
  Receipt Date: 20151203
  Transmission Date: 20160305
  Serious: Yes (Death)
  Sender: FDA-Public Use
  Company Number: US-HLSUS-2015-US-000017

PATIENT
  Age: 91 Year
  Sex: Female

DRUGS (1)
  1. CLOZARIL [Suspect]
     Active Substance: CLOZAPINE

REACTIONS (2)
  - Death [Fatal]
  - Neutrophil count decreased [None]

NARRATIVE: CASE EVENT DATE: 2015
